FAERS Safety Report 4435669-9 (Version None)
Quarter: 2004Q3

REPORT INFORMATION
  Report Type: 
  Country: None (occurrence: None)
  Receive Date: 20040726
  Receipt Date: 20040423
  Transmission Date: 20050211
  Serious: No
  Sender: FDA-Public Use
  Company Number: USA040464726

PATIENT
  Age: 52 Year
  Sex: Female
  Weight: 55 kg

DRUGS (7)
  1. FORTEO [Suspect]
     Indication: OSTEOPOROSIS
     Dosage: 20 UG/1 DAY
     Dates: start: 20030801
  2. CALCIUM [Concomitant]
  3. VITAMIN D [Concomitant]
  4. ESTROGEN NOS [Concomitant]
  5. MIACALCIN (CACITONIN SALMON) [Concomitant]
  6. SYNTHROID [Concomitant]
  7. CYTOMEL [Concomitant]

REACTIONS (3)
  - BLOOD CALCIUM INCREASED [None]
  - CONSTIPATION [None]
  - PAIN IN EXTREMITY [None]
